FAERS Safety Report 12804638 (Version 2)
Quarter: 2016Q4

REPORT INFORMATION
  Report Type: Spontaneous
  Country: US (occurrence: US)
  Receive Date: 20161003
  Receipt Date: 20161122
  Transmission Date: 20170207
  Serious: No
  Sender: FDA-Public Use
  Company Number: US-ASTRAZENECA-2016SF01275

PATIENT
  Sex: Female

DRUGS (1)
  1. TUDORZA PRESSAIR [Suspect]
     Active Substance: ACLIDINIUM BROMIDE
     Dosage: 400 MCG 1 PUFF TWICE A DAY
     Route: 055
     Dates: start: 2014

REACTIONS (5)
  - Intentional product misuse [Unknown]
  - Drug dose omission [Unknown]
  - Device issue [Unknown]
  - Product quality issue [Unknown]
  - Bronchitis [Unknown]
